FAERS Safety Report 8165627-2 (Version None)
Quarter: 2012Q1

REPORT INFORMATION
  Report Type: 
  Country: None (occurrence: None)
  Receive Date: 20120223
  Receipt Date: 20120223
  Transmission Date: 20120608
  Serious: Yes (Other)
  Sender: FDA-Public Use
  Company Number: None

PATIENT
  Sex: Female
  Weight: 86.1834 kg

DRUGS (1)
  1. CYMBALTA [Suspect]
     Indication: NEURALGIA
     Dosage: 60MG 1/DAY ORAL  01/25
     Route: 048

REACTIONS (8)
  - CONSTIPATION [None]
  - LETHARGY [None]
  - BALANCE DISORDER [None]
  - ABDOMINAL PAIN UPPER [None]
  - ABNORMAL DREAMS [None]
  - VISION BLURRED [None]
  - DRY MOUTH [None]
  - NAUSEA [None]
